FAERS Safety Report 4607933-1 (Version None)
Quarter: 2005Q1

REPORT INFORMATION
  Report Type: 
  Country: None (occurrence: None)
  Receive Date: 20050314
  Receipt Date: 20050304
  Transmission Date: 20050727
  Serious: Yes (Hospitalization)
  Sender: FDA-Public Use
  Company Number: JP-ABBOTT-05P-087-0293122-00

PATIENT

DRUGS (2)
  1. CLARITH DRY SYRUP [Suspect]
     Indication: CHRONIC SINUSITIS
     Route: 048
     Dates: start: 20040605
  2. KETOTIFEN FUMARATE [Concomitant]
     Indication: DRUG USE FOR UNKNOWN INDICATION

REACTIONS (3)
  - ABDOMINAL PAIN [None]
  - HENOCH-SCHONLEIN PURPURA [None]
  - JOINT SWELLING [None]
